FAERS Safety Report 7008058-0 (Version None)
Quarter: 2010Q3

REPORT INFORMATION
  Report Type: 
  Country: None (occurrence: None)
  Receive Date: 20100922
  Receipt Date: 20100910
  Transmission Date: 20110219
  Serious: Yes (Hospitalization)
  Sender: FDA-Public Use
  Company Number: US-ELI_LILLY_AND_COMPANY-US201009004082

PATIENT
  Sex: Female

DRUGS (16)
  1. FORTEO [Suspect]
     Indication: OSTEOPOROSIS
     Dosage: 20 UG, DAILY (1/D)
     Dates: start: 20090801
  2. BENICAR [Concomitant]
     Dosage: 40 MG, UNK
  3. CRESTOR [Concomitant]
  4. COREG [Concomitant]
  5. HUMIRA [Concomitant]
     Indication: RHEUMATOID ARTHRITIS
  6. HYZAAR [Concomitant]
  7. IMDUR [Concomitant]
  8. IMURAN [Concomitant]
  9. IRON [Concomitant]
  10. VITAMIN D [Concomitant]
  11. CALTRATE [Concomitant]
  12. PREDNISONE [Concomitant]
  13. PREVACID [Concomitant]
  14. RANEXA [Concomitant]
  15. VESICARE [Concomitant]
     Indication: INCONTINENCE
  16. TYLENOL W/ CODEINE NO. 3 [Concomitant]
     Dosage: UNK, EVERY 6 HRS

REACTIONS (6)
  - ANGINA PECTORIS [None]
  - BLOOD PRESSURE INCREASED [None]
  - BLOOD SODIUM DECREASED [None]
  - CARDIAC DISORDER [None]
  - GAIT DISTURBANCE [None]
  - WHITE BLOOD CELLS URINE POSITIVE [None]
